FAERS Safety Report 21023910 (Version 1)
Quarter: 2022Q2

REPORT INFORMATION
  Report Type: Spontaneous
  Country: BR (occurrence: BR)
  Receive Date: 20220629
  Receipt Date: 20220629
  Transmission Date: 20220721
  Serious: Yes (Other)
  Sender: FDA-Public Use
  Company Number: BR-FreseniusKabi-FK202209168

PATIENT
  Age: 3 Year
  Sex: Female
  Weight: 14 kg

DRUGS (2)
  1. PROPOFOL [Suspect]
     Active Substance: PROPOFOL
     Indication: General anaesthesia
     Route: 065
  2. SEVOFLURANE [Concomitant]
     Active Substance: SEVOFLURANE
     Indication: General anaesthesia
     Dosage: (CAM 0,8-1,0)
     Route: 065

REACTIONS (2)
  - Myocarditis [Recovering/Resolving]
  - Cardiogenic shock [Recovering/Resolving]
